FAERS Safety Report 10065664 (Version 2)
Quarter: 2014Q2

REPORT INFORMATION
  Report Type: Spontaneous
  Country: US (occurrence: US)
  Receive Date: 20140408
  Receipt Date: 20140410
  Transmission Date: 20141212
  Serious: No
  Sender: FDA-Public Use
  Company Number: US-PFIZER INC-2014093379

PATIENT
  Age: 75 Year
  Sex: Male

DRUGS (4)
  1. SUTENT [Suspect]
     Indication: RENAL CANCER
     Dosage: 50 MG, CYCLIC (QD X 11 DAYS ON, 7 DAYS OFF) (STRENGTH 12.5 MG)
     Route: 048
     Dates: start: 20140304
  2. TAMSULOSIN [Concomitant]
     Dosage: UNK
  3. IRON [Concomitant]
     Dosage: UNK
  4. ULORIC [Concomitant]
     Dosage: UNK

REACTIONS (2)
  - Stomatitis [Unknown]
  - Abdominal pain upper [Unknown]
